FAERS Safety Report 22735931 (Version 3)
Quarter: 2023Q4

REPORT INFORMATION
  Report Type: Spontaneous
  Country: US (occurrence: US)
  Receive Date: 20230721
  Receipt Date: 20231124
  Transmission Date: 20240110
  Serious: Yes (Other)
  Sender: FDA-Public Use
  Company Number: US-BRISTOL-MYERS SQUIBB COMPANY-2023-102749

PATIENT
  Age: 68 Year
  Sex: Female

DRUGS (1)
  1. ZEPOSIA [Suspect]
     Active Substance: OZANIMOD HYDROCHLORIDE
     Indication: Multiple sclerosis
     Dosage: TAKE 1 CAPSULE BY MOUTH ONCE DAILY
     Route: 048

REACTIONS (12)
  - Blindness [Not Recovered/Not Resolved]
  - Off label use [Unknown]
  - Procedural pain [Unknown]
  - Gait disturbance [Unknown]
  - Weight increased [Unknown]
  - Confusional state [Unknown]
  - Tremor [Unknown]
  - Dyspnoea [Unknown]
  - Fatigue [Unknown]
  - Multiple sclerosis [Unknown]
  - Drug ineffective [Unknown]
  - Crying [Unknown]

NARRATIVE: CASE EVENT DATE: 20221101
